FAERS Safety Report 14068976 (Version 1)
Quarter: 2017Q4

REPORT INFORMATION
  Report Type: Spontaneous
  Country: ZA (occurrence: ZA)
  Receive Date: 20171010
  Receipt Date: 20171010
  Transmission Date: 20180321
  Serious: Yes (Hospitalization)
  Sender: FDA-Public Use
  Company Number: ZA-ASTRAZENECA-2017SF01562

PATIENT
  Sex: Female

DRUGS (10)
  1. MONTELUKAST [Concomitant]
     Active Substance: MONTELUKAST SODIUM
  2. CLIMARA [Concomitant]
     Active Substance: ESTRADIOL
     Dosage: 50/3.5 MILLIGRAMS
  3. FOXAIR [Concomitant]
     Active Substance: FLUTICASONE PROPIONATE\SALMETEROL XINAFOATE
  4. VENLOR XL [Concomitant]
  5. TRUSTAN [Suspect]
     Active Substance: ESOMEPRAZOLE
     Indication: ULCER
     Dosage: 40.0MG UNKNOWN
     Route: 048
  6. MIRABEGRON [Concomitant]
     Active Substance: MIRABEGRON
  7. LASIX [Concomitant]
     Active Substance: FUROSEMIDE
  8. ELTROXIN [Concomitant]
     Active Substance: LEVOTHYROXINE
  9. PLENISH K [Concomitant]
  10. DONESEPT [Concomitant]

REACTIONS (1)
  - Lung disorder [Not Recovered/Not Resolved]
